FAERS Safety Report 15261835 (Version 1)
Quarter: 2018Q3

REPORT INFORMATION
  Report Type: Spontaneous
  Country: US (occurrence: US)
  Receive Date: 20180719
  Receipt Date: 20180719
  Transmission Date: 20181010
  Serious: Yes (Death, Hospitalization, Other)
  Sender: FDA-Public Use
  Company Number: None

PATIENT
  Age: 70 Year
  Sex: Male
  Weight: 54 kg

DRUGS (1)
  1. KEYTRUDA [Suspect]
     Active Substance: PEMBROLIZUMAB
     Indication: IMMUNE SYSTEM DISORDER
     Route: 042
     Dates: start: 20180524, end: 20180524

REACTIONS (6)
  - Platelet count decreased [None]
  - Rash papular [None]
  - Pain [None]
  - Rash generalised [None]
  - Blister [None]
  - Haemorrhage [None]

NARRATIVE: CASE EVENT DATE: 20180611
